FAERS Safety Report 7270553-7 (Version None)
Quarter: 2011Q1

REPORT INFORMATION
  Report Type: 
  Country: None (occurrence: None)
  Receive Date: 20110202
  Receipt Date: 20110201
  Transmission Date: 20110831
  Serious: Yes (Other)
  Sender: FDA-Public Use
  Company Number: A0910951A

PATIENT
  Age: 40 Year
  Sex: Female

DRUGS (2)
  1. NICOTINE [Suspect]
     Route: 062
  2. COPAXONE [Suspect]
     Indication: MULTIPLE SCLEROSIS
     Dosage: 20MG PER DAY
     Route: 058
     Dates: start: 20100726

REACTIONS (1)
  - CONVULSION [None]
